FAERS Safety Report 5483872-1 (Version None)
Quarter: 2007Q4

REPORT INFORMATION
  Report Type: 
  Country: None (occurrence: None)
  Receive Date: 20071012
  Receipt Date: 20071004
  Transmission Date: 20080405
  Serious: Yes (Death)
  Sender: FDA-Public Use
  Company Number: JP-JNJFOC-20070905126

PATIENT
  Sex: Female
  Weight: 70 kg

DRUGS (10)
  1. RISPERIDONE [Suspect]
     Indication: SCHIZOPHRENIA
     Route: 048
  2. OLANZAPINE [Suspect]
     Route: 048
  3. OLANZAPINE [Suspect]
     Indication: SCHIZOPHRENIA
     Route: 048
  4. BIPERIDEN HYDROCHLORIDE TAB [Concomitant]
     Indication: BIPOLAR I DISORDER
     Route: 048
  5. CARBAMAZEPINE [Concomitant]
     Indication: BIPOLAR I DISORDER
     Route: 048
  6. TOCOPHEROL CONCENTRATE CAP [Concomitant]
     Indication: HYPERLIPIDAEMIA
     Route: 048
  7. SIMVASTATIN [Concomitant]
     Indication: HYPERLIPIDAEMIA
     Route: 048
  8. LIPITOR [Concomitant]
     Indication: HYPERLIPIDAEMIA
     Route: 048
  9. PROMETHAZINE HCL [Concomitant]
     Route: 048
  10. PROMETHAZINE HCL [Concomitant]
     Indication: BIPOLAR I DISORDER
     Route: 048

REACTIONS (8)
  - ABNORMAL BEHAVIOUR [None]
  - ANOREXIA [None]
  - CARDIAC FAILURE ACUTE [None]
  - DEPRESSION [None]
  - INSOMNIA [None]
  - PYREXIA [None]
  - STUPOR [None]
  - SUICIDE ATTEMPT [None]
